FAERS Safety Report 6905379-4 (Version None)
Quarter: 2010Q3

REPORT INFORMATION
  Report Type: 
  Country: None (occurrence: None)
  Receive Date: 20100804
  Receipt Date: 20100726
  Transmission Date: 20110219
  Serious: Yes (Disabling)
  Sender: FDA-Public Use
  Company Number: CA-ASTRAZENECA-2010SE28566

PATIENT
  Age: 43 Year
  Sex: Male

DRUGS (3)
  1. NEXIUM [Suspect]
     Indication: DYSPEPSIA
     Route: 048
     Dates: start: 20091126
  2. NEXIUM [Suspect]
     Indication: GASTROOESOPHAGEAL REFLUX DISEASE
     Route: 048
     Dates: start: 20091126
  3. DIAZEPAM [Concomitant]
     Dosage: RARELY NEEDED, RARELY TAKE
     Route: 048

REACTIONS (1)
  - TINNITUS [None]
